FAERS Safety Report 10408540 (Version 5)
Quarter: 2014Q4

REPORT INFORMATION
  Report Type: Report from Study
  Country: CA (occurrence: CA)
  Receive Date: 20140826
  Receipt Date: 20141230
  Transmission Date: 20150528
  Serious: Yes (Hospitalization, Other)
  Sender: FDA-Public Use
  Company Number: PHHO2014CA006994

PATIENT
  Age: 86 Year
  Sex: Female
  Weight: 74 kg

DRUGS (8)
  1. KLONOPIN [Suspect]
     Active Substance: CLONAZEPAM
     Dosage: 1.25 MG, QD (0.5 MG QD + 0.75 MG QD)
     Route: 048
     Dates: start: 20140614, end: 20140616
  2. NITRO PATCH [Concomitant]
     Indication: ANGINA PECTORIS
     Dosage: UNK (DAILY)
     Route: 065
  3. METOPROLOL [Concomitant]
     Active Substance: METOPROLOL
     Indication: HYPERTENSION
     Dosage: 25 MG, BID
     Route: 065
  4. PLACEBO [Suspect]
     Active Substance: UNSPECIFIED INGREDIENT
     Indication: BREAST CANCER METASTATIC
     Dosage: 100 MG, UNK
     Route: 048
     Dates: start: 20140410, end: 20140429
  5. KLONOPIN [Suspect]
     Active Substance: CLONAZEPAM
     Dosage: 0.75 MG, BID
     Route: 048
     Dates: start: 20140610, end: 20140612
  6. COMPARATOR FULVESTRANT [Suspect]
     Active Substance: FULVESTRANT
     Indication: BREAST CANCER METASTATIC
     Dosage: 500 MG, UNK
     Route: 030
     Dates: start: 20140326, end: 20140521
  7. PERINDOPRIL [Concomitant]
     Active Substance: PERINDOPRIL
     Indication: HYPERTENSION
     Dosage: UNK  (DAILY)
     Route: 065
  8. KLONOPIN [Suspect]
     Active Substance: CLONAZEPAM
     Indication: ANXIETY
     Dosage: 1 MG, BID
     Route: 048
     Dates: end: 20140606

REACTIONS (3)
  - Toxicity to various agents [Recovered/Resolved]
  - Transient ischaemic attack [Recovered/Resolved]
  - Anxiety [Recovered/Resolved]

NARRATIVE: CASE EVENT DATE: 20140424
